FAERS Safety Report 12048628 (Version 1)
Quarter: 2016Q1

REPORT INFORMATION
  Report Type: Report from Study
  Country: US (occurrence: US)
  Receive Date: 20160208
  Receipt Date: 20160208
  Transmission Date: 20160526
  Serious: Yes (Hospitalization)
  Sender: FDA-Public Use
  Company Number: US-BIOGEN-2014BI106805

PATIENT
  Age: 56 Year
  Sex: Female
  Weight: 108.96 kg

DRUGS (3)
  1. TECFIDERA [Suspect]
     Active Substance: DIMETHYL FUMARATE
     Route: 048
     Dates: start: 201206
  2. TECFIDERA [Suspect]
     Active Substance: DIMETHYL FUMARATE
     Indication: MULTIPLE SCLEROSIS
     Route: 048
  3. TECFIDERA [Suspect]
     Active Substance: DIMETHYL FUMARATE
     Route: 048
     Dates: start: 201206

REACTIONS (4)
  - Hernia [Recovered/Resolved]
  - Diverticulitis [Recovered/Resolved]
  - Prescribed underdose [Not Recovered/Not Resolved]
  - Carcinoid tumour of the duodenum [Recovered/Resolved]

NARRATIVE: CASE EVENT DATE: 20140820
